FAERS Safety Report 9686135 (Version 2)
Quarter: 2013Q4

REPORT INFORMATION
  Report Type: Report from Study
  Country: BR (occurrence: BR)
  Receive Date: 20131113
  Receipt Date: 20131212
  Transmission Date: 20140711
  Serious: Yes (Other)
  Sender: FDA-Public Use
  Company Number: PHHY2013BR129322

PATIENT
  Sex: Male
  Weight: 74 kg

DRUGS (4)
  1. DIOVAN [Suspect]
     Indication: HYPERTENSION
     Dosage: 1 DF, DAILY
     Route: 048
     Dates: start: 2012
  2. NAPRIX [Suspect]
     Indication: HYPERTENSION
     Dosage: 1 DF (5/5MG) DAILY
     Route: 048
  3. NATRILIX [Suspect]
     Indication: HYPERTENSION
     Dosage: 1 DF, DAILY
     Route: 048
  4. SINVASCOR [Concomitant]
     Indication: BLOOD CHOLESTEROL INCREASED
     Dosage: 20 MG, QD (AT NIGHT)
     Route: 048

REACTIONS (3)
  - Hypertension [Recovering/Resolving]
  - Erectile dysfunction [Not Recovered/Not Resolved]
  - Headache [Recovered/Resolved]
